FAERS Safety Report 6006699-0 (Version None)
Quarter: 2008Q4

REPORT INFORMATION
  Report Type: 
  Country: None (occurrence: None)
  Receive Date: 20081217
  Receipt Date: 20081211
  Transmission Date: 20090506
  Serious: Yes (Hospitalization)
  Sender: FDA-Public Use
  Company Number: US-ELI_LILLY_AND_COMPANY-US200806004491

PATIENT
  Age: 30 Year
  Sex: Male

DRUGS (6)
  1. HUMALOG [Suspect]
     Indication: DIABETES MELLITUS
     Dosage: UNK, AS NEEDED
  2. HUMALOG [Suspect]
     Dosage: 8 U, UNK
  3. HUMALOG [Suspect]
     Dosage: 3 U, UNK
  4. HUMALOG [Suspect]
     Dosage: 25 U, UNK
  5. HUMULIN R [Suspect]
     Indication: DIABETES MELLITUS
     Dosage: 20 U, UNK
  6. HUMULIN N [Suspect]
     Indication: DIABETES MELLITUS
     Dosage: 40 U, UNK

REACTIONS (6)
  - BLOOD GLUCOSE INCREASED [None]
  - DIABETIC KETOACIDOSIS [None]
  - DRUG INEFFECTIVE [None]
  - MALAISE [None]
  - PANCREATITIS [None]
  - VOMITING [None]
